FAERS Safety Report 4819000-2 (Version None)
Quarter: 2005Q4

REPORT INFORMATION
  Report Type: 
  Country: None (occurrence: None)
  Receive Date: 20051101
  Receipt Date: 20051101
  Transmission Date: 20060501
  Serious: No
  Sender: FDA-Public Use
  Company Number: None

PATIENT
  Age: 43 Year
  Sex: Male
  Weight: 61.5 kg

DRUGS (1)
  1. BACTRIM DS [Suspect]
     Indication: PROPHYLAXIS
     Dosage: ONE TABLET     DAILY    PO
     Route: 048
     Dates: start: 20051018, end: 20051031

REACTIONS (1)
  - ELECTROCARDIOGRAM QRS COMPLEX PROLONGED [None]
